FAERS Safety Report 16918949 (Version 7)
Quarter: 2022Q4

REPORT INFORMATION
  Report Type: Spontaneous
  Country: US (occurrence: US)
  Receive Date: 20191015
  Receipt Date: 20221017
  Transmission Date: 20230113
  Serious: Yes (Hospitalization, Other)
  Sender: FDA-Public Use
  Company Number: US-PFIZER INC-2019064045

PATIENT
  Age: 77 Year
  Sex: Female

DRUGS (2)
  1. XELJANZ XR [Suspect]
     Active Substance: TOFACITINIB CITRATE
     Indication: Blood pressure abnormal
     Dosage: 11 MG, 1X/DAY (TAKE 1 TABLET BY MOUTH EVERY DAY)
     Route: 048
  2. XELJANZ XR [Suspect]
     Active Substance: TOFACITINIB CITRATE
     Indication: Psoriatic arthropathy

REACTIONS (7)
  - Myocardial infarction [Unknown]
  - Drug ineffective [Unknown]
  - Off label use [Unknown]
  - Dysphonia [Unknown]
  - Illness [Unknown]
  - Feeling abnormal [Unknown]
  - Cognitive disorder [Unknown]

NARRATIVE: CASE EVENT DATE: 20210220
